FAERS Safety Report 9632669 (Version 1)
Quarter: 2013Q4

REPORT INFORMATION
  Report Type: Spontaneous
  Country: US (occurrence: US)
  Receive Date: 20131018
  Receipt Date: 20131018
  Transmission Date: 20140711
  Serious: No
  Sender: FDA-Public Use
  Company Number: US-TEVA-438726USA

PATIENT
  Age: 71 Year
  Sex: Male
  Weight: 88.53 kg

DRUGS (7)
  1. AZILECT [Suspect]
     Indication: PARKINSON^S DISEASE
     Route: 048
  2. CELEBREX [Concomitant]
     Route: 048
  3. ASPIRIN [Concomitant]
     Route: 048
  4. DEXALANT [Concomitant]
  5. FLOMAX [Concomitant]
     Dosage: .4 MILLIGRAM DAILY;
     Route: 048
  6. FISH OIL [Concomitant]
  7. MELATONIN [Concomitant]
     Dosage: 2 TABLETS QPM

REACTIONS (2)
  - Eye pain [Not Recovered/Not Resolved]
  - Pollakiuria [Not Recovered/Not Resolved]
